FAERS Safety Report 9331334 (Version 1)
Quarter: 2013Q2

REPORT INFORMATION
  Report Type: Spontaneous
  Country: US (occurrence: US)
  Receive Date: 20130605
  Receipt Date: 20130605
  Transmission Date: 20140414
  Serious: No
  Sender: FDA-Public Use
  Company Number: US-TARO-2012P1018054

PATIENT
  Age: 13 Month
  Sex: Female
  Weight: 10.43 kg

DRUGS (2)
  1. CETIRIZINE HCL [Suspect]
     Dates: start: 20120420, end: 20120420
  2. CETIRIZINE HCL [Suspect]
     Dates: start: 20120421, end: 20120421

REACTIONS (1)
  - Urticaria [Recovered/Resolved]
